FAERS Safety Report 9456354 (Version 1)
Quarter: 2013Q3

REPORT INFORMATION
  Report Type: Spontaneous
  Country: US (occurrence: None)
  Receive Date: 20130812
  Receipt Date: 20130812
  Transmission Date: 20140515
  Serious: No
  Sender: FDA-Public Use
  Company Number: None

PATIENT
  Age: 36 Year
  Sex: Female
  Weight: 61.69 kg

DRUGS (2)
  1. MONTELUKAST SODIUM [Suspect]
     Indication: ASTHMA EXERCISE INDUCED
     Dosage: 1 ONCE DAILY TAKEN BY MOUTH
     Route: 048
     Dates: start: 20130716, end: 20130808
  2. MONTELUKAST SODIUM [Suspect]
     Indication: MULTIPLE ALLERGIES
     Dosage: 1 ONCE DAILY TAKEN BY MOUTH
     Route: 048
     Dates: start: 20130716, end: 20130808

REACTIONS (4)
  - Dizziness [None]
  - Balance disorder [None]
  - Drug ineffective [None]
  - Product substitution issue [None]
